FAERS Safety Report 16530250 (Version 1)
Quarter: 2019Q3

REPORT INFORMATION
  Report Type: Report from Study
  Country: US (occurrence: US)
  Receive Date: 20190704
  Receipt Date: 20190704
  Transmission Date: 20191004
  Serious: Yes (Other)
  Sender: FDA-Public Use
  Company Number: US-ROCHE-2347658

PATIENT
  Age: 3 Year
  Sex: Male
  Weight: 15.2 kg

DRUGS (3)
  1. HEPARIN [Concomitant]
     Active Substance: HEPARIN SODIUM
  2. BIVALIRUDIN. [Concomitant]
     Active Substance: BIVALIRUDIN
  3. ALTEPLASE. [Suspect]
     Active Substance: ALTEPLASE
     Indication: PRODUCT USED FOR UNKNOWN INDICATION
     Route: 065

REACTIONS (7)
  - Vena cava thrombosis [Unknown]
  - Shunt thrombosis [Unknown]
  - Hypercoagulation [Unknown]
  - Areflexia [Unknown]
  - Hypoxia [Unknown]
  - Corneal reflex decreased [Unknown]
  - Arrhythmia supraventricular [Unknown]
